FAERS Safety Report 16643238 (Version 1)
Quarter: 2019Q3

REPORT INFORMATION
  Report Type: Spontaneous
  Country: US (occurrence: US)
  Receive Date: 20190729
  Receipt Date: 20190729
  Transmission Date: 20191004
  Serious: Yes (Other)
  Sender: FDA-Public Use
  Company Number: US-AKORN PHARMACEUTICALS-2019AKN01353

PATIENT
  Age: 12 Year
  Sex: Male
  Weight: 54.42 kg

DRUGS (3)
  1. TAZAROTENE. [Concomitant]
     Active Substance: TAZAROTENE
  2. MYORISAN [Suspect]
     Active Substance: ISOTRETINOIN
     Indication: ACNE
     Dosage: 30 MG, 1X/DAY
     Route: 048
     Dates: start: 20190514, end: 20190614
  3. MYORISAN [Suspect]
     Active Substance: ISOTRETINOIN
     Indication: ACNE
     Dosage: 20 MG, 1X/DAY
     Route: 048
     Dates: start: 20190508, end: 20190614

REACTIONS (5)
  - Cheilitis [Recovering/Resolving]
  - Off label use [Recovered/Resolved]
  - Unevaluable event [Recovering/Resolving]
  - Social avoidant behaviour [Recovering/Resolving]
  - Eczema [Recovering/Resolving]

NARRATIVE: CASE EVENT DATE: 2019
